FAERS Safety Report 9137029 (Version 1)
Quarter: 2013Q1

REPORT INFORMATION
  Report Type: Spontaneous
  Country: IT (occurrence: IT)
  Receive Date: 20130304
  Receipt Date: 20130304
  Transmission Date: 20140127
  Serious: Yes (Other)
  Sender: FDA-Public Use
  Company Number: IT-ASTRAZENECA-2013SE12366

PATIENT
  Age: 28417 Day
  Sex: Male
  Weight: 70 kg

DRUGS (4)
  1. BRILIQUE [Suspect]
     Indication: ANGIOPLASTY
     Route: 048
     Dates: start: 20121001, end: 20130130
  2. CARDIOASPIRIN [Suspect]
     Indication: ANGIOPLASTY
     Route: 048
     Dates: start: 20121001
  3. ENAPREN [Concomitant]
     Indication: HYPERTENSIVE HEART DISEASE
     Route: 048
     Dates: start: 20121001
  4. SINTROM [Concomitant]
     Indication: HYPERTENSIVE HEART DISEASE
     Route: 048
     Dates: start: 20121001

REACTIONS (3)
  - Erythema [Recovered/Resolved]
  - Hypotension [Recovered/Resolved]
  - Pruritus generalised [Recovered/Resolved]
